FAERS Safety Report 6395490-1 (Version None)
Quarter: 2009Q4

REPORT INFORMATION
  Report Type: 
  Country: None (occurrence: None)
  Receive Date: 20091009
  Receipt Date: 20091006
  Transmission Date: 20100525
  Serious: Yes (Other)
  Sender: FDA-Public Use
  Company Number: JP-BAXTER-2009BH014152

PATIENT
  Age: 69 Year
  Sex: Female

DRUGS (1)
  1. SORBITOL 3% IN PLASTIC CONTAINER [Suspect]
     Indication: BLADDER HYDRODISTENSION
     Route: 043
     Dates: start: 20030714, end: 20030714

REACTIONS (2)
  - ABDOMINAL PAIN [None]
  - TRANSURETHRAL RESECTION SYNDROME [None]
